FAERS Safety Report 5478206-2 (Version None)
Quarter: 2007Q4

REPORT INFORMATION
  Report Type: 
  Country: None (occurrence: None)
  Receive Date: 20071005
  Receipt Date: 20070426
  Transmission Date: 20080405
  Serious: No
  Sender: FDA-Public Use
  Company Number: US-BRISTOL-MYERS SQUIBB COMPANY-13761796

PATIENT
  Age: 59 Year
  Sex: Female
  Weight: 162 kg

DRUGS (10)
  1. AVAPRO FILM-COATED/RM TABS 300 MG [Suspect]
     Route: 048
  2. LASIX [Concomitant]
     Route: 048
  3. NEXIUM [Concomitant]
     Route: 048
  4. TRENTAL [Concomitant]
     Route: 048
  5. ZYRTEC [Concomitant]
     Route: 048
  6. POTASSIUM CHLORIDE [Concomitant]
     Route: 048
  7. OSTEO BI-FLEX [Concomitant]
     Route: 048
  8. OCUVITE [Concomitant]
  9. VITAMIN E [Concomitant]
  10. ESTER-C [Concomitant]

REACTIONS (1)
  - HYPERTENSION [None]
